FAERS Safety Report 11577391 (Version 1)
Quarter: 2015Q3

REPORT INFORMATION
  Report Type: Spontaneous
  Country: US (occurrence: US)
  Receive Date: 20150916
  Receipt Date: 20150916
  Transmission Date: 20151125
  Serious: No
  Sender: FDA-Public Use
  Company Number: US-ELI_LILLY_AND_COMPANY-US201306003044

PATIENT
  Sex: Male

DRUGS (1)
  1. HUMALOG MIX75/25 [Suspect]
     Active Substance: INSULIN LISPRO
     Indication: DIABETES MELLITUS
     Dosage: UNK U, TID

REACTIONS (4)
  - Joint swelling [Recovering/Resolving]
  - Oedema [Recovering/Resolving]
  - Drug hypersensitivity [Recovering/Resolving]
  - Abdominal distension [Recovering/Resolving]
